FAERS Safety Report 7310692-5 (Version None)
Quarter: 2011Q1

REPORT INFORMATION
  Report Type: 
  Country: None (occurrence: None)
  Receive Date: 20110211
  Receipt Date: 20110121
  Transmission Date: 20110831
  Serious: Yes (Hospitalization, Other)
  Sender: FDA-Public Use
  Company Number: 2011P1004026

PATIENT
  Age: 74 Year
  Sex: Male
  Weight: 99.7913 kg

DRUGS (8)
  1. HYDROCHLOROTHIAZIDE [Concomitant]
  2. CINACALCET [Concomitant]
  3. TERAZOSIN HCL [Suspect]
     Indication: PROSTATOMEGALY
     Dosage: 4 CAPSULES, QD, PO; 2 CAPSULES, QD, PO; 1 CAPSULE, QD, PO
     Route: 048
     Dates: start: 20100224, end: 20100201
  4. TERAZOSIN HCL [Suspect]
     Indication: PROSTATOMEGALY
     Dosage: 4 CAPSULES, QD, PO; 2 CAPSULES, QD, PO; 1 CAPSULE, QD, PO
     Route: 048
     Dates: start: 20090201
  5. TERAZOSIN HCL [Suspect]
     Indication: PROSTATOMEGALY
     Dosage: 4 CAPSULES, QD, PO; 2 CAPSULES, QD, PO; 1 CAPSULE, QD, PO
     Route: 048
     Dates: end: 20100224
  6. LEVOTHYROXINE [Concomitant]
  7. OMEPRAZOLE [Concomitant]
  8. TAMSULOSIN 0.4 MG (NO PREF. NAME) [Suspect]
     Dates: start: 20100222, end: 20100223

REACTIONS (10)
  - ERYTHEMA [None]
  - PARAESTHESIA [None]
  - TREMOR [None]
  - CHILLS [None]
  - MALAISE [None]
  - FEELING ABNORMAL [None]
  - HEART RATE DECREASED [None]
  - HEART RATE INCREASED [None]
  - COLD SWEAT [None]
  - HYPERTENSION [None]
